FAERS Safety Report 14185307 (Version 1)
Quarter: 2017Q4

REPORT INFORMATION
  Report Type: Spontaneous
  Country: US (occurrence: US)
  Receive Date: 20171114
  Receipt Date: 20171114
  Transmission Date: 20180321
  Serious: No
  Sender: FDA-Public Use
  Company Number: US-ARALEZ PHARMACEUTICALS R+D INC.-2017-ARA-001218

PATIENT
  Sex: Male
  Weight: 56.24 kg

DRUGS (7)
  1. TOPROL XL [Suspect]
     Active Substance: METOPROLOL SUCCINATE
     Indication: BLOOD PRESSURE MANAGEMENT
     Dosage: 50 MG, QD
     Dates: start: 201501
  2. BRILINTA [Suspect]
     Active Substance: TICAGRELOR
     Dosage: 90 MG, BID
     Route: 048
     Dates: start: 20171011
  3. LOSARTAN. [Concomitant]
     Active Substance: LOSARTAN
     Indication: BLOOD PRESSURE MANAGEMENT
     Dosage: UNK
     Dates: start: 201501
  4. BRILINTA [Suspect]
     Active Substance: TICAGRELOR
     Indication: PRODUCT USED FOR UNKNOWN INDICATION
     Dosage: 90 MG, BID
     Route: 048
     Dates: start: 20150106, end: 2015
  5. LIPITOR [Concomitant]
     Active Substance: ATORVASTATIN CALCIUM
     Indication: LDL/HDL RATIO INCREASED
     Dosage: UNK
     Dates: start: 201501
  6. LIPITOR [Concomitant]
     Active Substance: ATORVASTATIN CALCIUM
     Dosage: UNK
     Dates: start: 201710
  7. ASPIRIN                            /00002701/ [Concomitant]
     Active Substance: ASPIRIN
     Indication: PRODUCT USED FOR UNKNOWN INDICATION
     Dosage: UNK
     Dates: start: 2015

REACTIONS (3)
  - Body height decreased [Unknown]
  - Hypoacusis [Unknown]
  - Headache [Unknown]

NARRATIVE: CASE EVENT DATE: 2015
